FAERS Safety Report 9576598 (Version 1)
Quarter: 2013Q4

REPORT INFORMATION
  Report Type: Spontaneous
  Country: US (occurrence: US)
  Receive Date: 20131001
  Receipt Date: 20131001
  Transmission Date: 20140711
  Serious: No
  Sender: FDA-Public Use
  Company Number: US-AMGEN-USASP2013003861

PATIENT
  Age: 58 Year
  Sex: Male
  Weight: 104.31 kg

DRUGS (9)
  1. ENBREL [Suspect]
     Indication: PSORIATIC ARTHROPATHY
     Dosage: 50 MG, 2 TIMES/WK
     Route: 058
  2. LUMIGAN [Concomitant]
     Dosage: SOL 0.01 %, UNK
  3. LIPITOR [Concomitant]
     Dosage: 20 MG, UNK
  4. TRAMADOL HCL [Concomitant]
     Dosage: 50 MG, UNK
  5. LISINOPRIL [Concomitant]
     Dosage: 30 MG, UNK
  6. NEXIUM                             /01479303/ [Concomitant]
     Dosage: 20 MG, UNK
  7. CYCLOBENZAPRINE                    /00428402/ [Concomitant]
     Dosage: 5 MG, UNK
  8. DORZOLAMIDE [Concomitant]
     Dosage: 2 % SOL OP
     Route: 047
  9. VITAMIN D                          /00107901/ [Concomitant]
     Dosage: 1000 UNIT, UNK

REACTIONS (2)
  - Injection site pain [Recovered/Resolved]
  - Arthritis [Unknown]
